FAERS Safety Report 22181179 (Version 1)
Quarter: 2023Q2

REPORT INFORMATION
  Report Type: Spontaneous
  Country: US (occurrence: US)
  Receive Date: 20230406
  Receipt Date: 20230406
  Transmission Date: 20230722
  Serious: Yes (Life-Threatening, Disabling, Other)
  Sender: FDA-Public Use
  Company Number: US-PFIZER INC-PV202300059705

PATIENT
  Age: 3 Year
  Sex: Male

DRUGS (5)
  1. METHOTREXATE SODIUM [Suspect]
     Active Substance: METHOTREXATE SODIUM
     Indication: Acute lymphocytic leukaemia
     Dosage: UNK, CYCLIC
  2. VINCRISTINE SULFATE [Suspect]
     Active Substance: VINCRISTINE SULFATE
     Indication: Acute lymphocytic leukaemia
     Dosage: UNK, CYCLIC
  3. CYTARABINE [Suspect]
     Active Substance: CYTARABINE
     Indication: Acute lymphocytic leukaemia
     Dosage: UNK, CYCLIC
     Route: 037
  4. DEXAMETHASONE [Suspect]
     Active Substance: DEXAMETHASONE
     Indication: Acute lymphocytic leukaemia
     Dosage: 3 MG/M2, 2X/DAY
  5. PEG/L-ASPARAGINASE [Suspect]
     Active Substance: PEGASPARGASE
     Indication: Acute lymphocytic leukaemia
     Dosage: UNK, CYCLIC

REACTIONS (3)
  - Glaucoma [Not Recovered/Not Resolved]
  - Blindness unilateral [Not Recovered/Not Resolved]
  - Blindness transient [Not Recovered/Not Resolved]
